FAERS Safety Report 25473403 (Version 4)
Quarter: 2025Q3

REPORT INFORMATION
  Report Type: Spontaneous
  Country: US (occurrence: US)
  Receive Date: 20250624
  Receipt Date: 20250827
  Transmission Date: 20251021
  Serious: No
  Sender: PFIZER
  Company Number: US-PFIZER INC-202500125561

PATIENT
  Age: 15 Year
  Sex: Male
  Weight: 45.81 kg

DRUGS (1)
  1. GENOTROPIN [Suspect]
     Active Substance: SOMATROPIN
     Indication: Growth hormone deficiency
     Dosage: 1.8 MG, 1X/DAY

REACTIONS (3)
  - Wrong technique in device usage process [Unknown]
  - Drug administered in wrong device [Unknown]
  - Incorrect dose administered by device [Unknown]
